FAERS Safety Report 6355656-3 (Version None)
Quarter: 2009Q3

REPORT INFORMATION
  Report Type: 
  Country: None (occurrence: None)
  Receive Date: 20090914
  Receipt Date: 20090904
  Transmission Date: 20100115
  Serious: Yes (Disabling)
  Sender: FDA-Public Use
  Company Number: BE-ABBOTT-09P-013-0571172-00

PATIENT
  Sex: Male
  Weight: 74 kg

DRUGS (2)
  1. HUMIRA [Suspect]
     Indication: CROHN'S DISEASE
     Dates: start: 20080401, end: 20090312
  2. IMMODIUM INSTANT [Concomitant]
     Indication: DIARRHOEA
     Dosage: UP TO 8X/DAY, AS NEEDED

REACTIONS (5)
  - ALOPECIA [None]
  - DERMATITIS PSORIASIFORM [None]
  - PSORIASIS [None]
  - RASH [None]
  - SCAB [None]
